FAERS Safety Report 20144720 (Version 3)
Quarter: 2022Q1

REPORT INFORMATION
  Report Type: Report from Study
  Country: CN (occurrence: None)
  Receive Date: 20211203
  Receipt Date: 20220104
  Transmission Date: 20220423
  Serious: Yes (Hospitalization)
  Sender: FDA-Public Use
  Company Number: CN-ROCHE-2965078

PATIENT
  Age: 65 Year
  Sex: Female
  Weight: 44 kg

DRUGS (22)
  1. ATEZOLIZUMAB [Suspect]
     Active Substance: ATEZOLIZUMAB
     Indication: Oesophageal squamous cell carcinoma
     Dosage: MOST RECENT DOSE OF STUDY DRUG PRIOR TO AE: 11/NOV/2021
     Route: 041
     Dates: start: 20211111
  2. TIRAGOLUMAB [Suspect]
     Active Substance: TIRAGOLUMAB
     Indication: Oesophageal squamous cell carcinoma
     Dosage: MOST RECENT DOSE OF STUDY DRUG PRIOR TO AE: 11/NOV/2021
     Route: 042
     Dates: start: 20211111
  3. PACLITAXEL [Suspect]
     Active Substance: PACLITAXEL
     Indication: Oesophageal squamous cell carcinoma
     Dosage: MOST RECENT DOSE OF STUDY DRUG PRIOR TO AE/SAE: 11/NOV/2021
     Route: 042
     Dates: start: 20211111
  4. CISPLATIN [Suspect]
     Active Substance: CISPLATIN
     Indication: Oesophageal squamous cell carcinoma
     Dosage: MOST RECENT DOSE OF STUDY DRUG PRIOR TO AE/SAE: 11/NOV/2021
     Route: 042
     Dates: start: 20211111
  5. DEXAMETHASONE SODIUM PHOSPHATE [Concomitant]
     Active Substance: DEXAMETHASONE SODIUM PHOSPHATE
     Route: 042
     Dates: start: 20211111, end: 20211111
  6. DEXTROSE\SODIUM CHLORIDE [Concomitant]
     Active Substance: DEXTROSE\SODIUM CHLORIDE
     Dates: start: 20211110, end: 20211110
  7. DEXTROSE\SODIUM CHLORIDE [Concomitant]
     Active Substance: DEXTROSE\SODIUM CHLORIDE
     Dates: start: 20211112, end: 20211112
  8. SODIUM CHLORIDE [Concomitant]
     Active Substance: SODIUM CHLORIDE
     Dates: start: 20211110, end: 20211110
  9. SODIUM CHLORIDE [Concomitant]
     Active Substance: SODIUM CHLORIDE
     Dates: start: 20211112, end: 20211112
  10. POTASSIUM CHLORIDE [Concomitant]
     Active Substance: POTASSIUM CHLORIDE
     Dates: start: 20211110, end: 20211112
  11. SODIUM LACTATE RINGER^S [Concomitant]
     Dates: start: 20211110, end: 20211110
  12. SODIUM LACTATE RINGER^S [Concomitant]
     Dates: start: 20211112, end: 20211112
  13. DEXTROSE [Concomitant]
     Active Substance: DEXTROSE
     Dates: start: 20211110, end: 20211110
  14. FUROSEMIDE [Concomitant]
     Active Substance: FUROSEMIDE
     Indication: Polyuria
     Route: 042
     Dates: start: 20211110, end: 20211112
  15. LANSOPRAZOLE [Concomitant]
     Active Substance: LANSOPRAZOLE
     Dates: start: 20211111, end: 20211111
  16. PALONOSETRON HYDROCHLORIDE [Concomitant]
     Active Substance: PALONOSETRON HYDROCHLORIDE
     Indication: Nausea
     Dates: start: 20211111, end: 20211111
  17. PALONOSETRON HYDROCHLORIDE [Concomitant]
     Active Substance: PALONOSETRON HYDROCHLORIDE
     Indication: Vomiting
  18. FOSAPREPITANT DIMEGLUMINE [Concomitant]
     Active Substance: FOSAPREPITANT DIMEGLUMINE
     Indication: Nausea
     Dates: start: 20211111, end: 20211111
  19. FOSAPREPITANT DIMEGLUMINE [Concomitant]
     Active Substance: FOSAPREPITANT DIMEGLUMINE
     Indication: Vomiting
  20. DIPHENHYDRAMINE [Concomitant]
     Active Substance: DIPHENHYDRAMINE
     Dates: start: 20211111, end: 20211111
  21. CIMETIDINE [Concomitant]
     Active Substance: CIMETIDINE
     Dates: start: 20211111, end: 20211111
  22. RECOMBINANT HUMAN GRANULOCYTE COLONY-STIMULATING FACTOR INJECTION (GEN [Concomitant]
     Route: 058
     Dates: start: 20211122, end: 20211124

REACTIONS (2)
  - White blood cell count decreased [Recovered/Resolved]
  - Neutrophil count decreased [Recovered/Resolved]

NARRATIVE: CASE EVENT DATE: 20211118
